FAERS Safety Report 10272513 (Version 1)
Quarter: 2014Q2

REPORT INFORMATION
  Report Type: Spontaneous
  Country: US (occurrence: None)
  Receive Date: 20140630
  Receipt Date: 20140630
  Transmission Date: 20141212
  Serious: No
  Sender: FDA-Public Use
  Company Number: None

PATIENT
  Age: 58 Year
  Sex: Female
  Weight: 71.67 kg

DRUGS (1)
  1. POLIDOCANOL [Suspect]
     Indication: SPIDER VEIN

REACTIONS (12)
  - Dizziness postural [None]
  - Tremor [None]
  - Condition aggravated [None]
  - Cough [None]
  - Chest pain [None]
  - Hypersensitivity [None]
  - Flushing [None]
  - Palpitations [None]
  - Nausea [None]
  - Erythema [None]
  - Fatigue [None]
  - Asthenia [None]
